FAERS Safety Report 5623953-2 (Version None)
Quarter: 2008Q1

REPORT INFORMATION
  Report Type: 
  Country: None (occurrence: None)
  Receive Date: 20080213
  Receipt Date: 20080211
  Transmission Date: 20080703
  Serious: Yes (Disabling)
  Sender: FDA-Public Use
  Company Number: DK-RB-008956-08

PATIENT
  Sex: Male

DRUGS (3)
  1. SUBOXONE [Suspect]
     Route: 060
     Dates: start: 20071005
  2. SUBOXONE [Suspect]
     Indication: SUPPLEMENTATION THERAPY
     Route: 060
     Dates: start: 20080101, end: 20080107
  3. LYRICA [Concomitant]
     Indication: DRUG USE FOR UNKNOWN INDICATION
     Route: 065
     Dates: start: 20061201, end: 20071201

REACTIONS (3)
  - OEDEMA PERIPHERAL [None]
  - PAIN [None]
  - PARAESTHESIA [None]
